FAERS Safety Report 5299954-3 (Version None)
Quarter: 2007Q2

REPORT INFORMATION
  Report Type: 
  Country: None (occurrence: None)
  Receive Date: 20070417
  Receipt Date: 20070404
  Transmission Date: 20071010
  Serious: Yes (Other)
  Sender: FDA-Public Use
  Company Number: CA-AMGEN-US218207

PATIENT
  Sex: Male
  Weight: 78.1 kg

DRUGS (3)
  1. ENBREL [Suspect]
     Indication: PSORIATIC ARTHROPATHY
     Route: 065
     Dates: start: 20050101, end: 20070319
  2. METHOTREXATE [Concomitant]
     Route: 065
  3. ARTHROTEC [Concomitant]
     Route: 065

REACTIONS (2)
  - INJECTION SITE PAIN [None]
  - TUBERCULOSIS [None]
